FAERS Safety Report 20880546 (Version 1)
Quarter: 2022Q2

REPORT INFORMATION
  Report Type: Report from Study
  Country: US (occurrence: US)
  Receive Date: 20220526
  Receipt Date: 20220526
  Transmission Date: 20220720
  Serious: Yes (Other)
  Sender: FDA-Public Use
  Company Number: US-ALLERGAN-2217206US

PATIENT
  Sex: Male

DRUGS (1)
  1. BOTULINUM TOXIN TYPE A [Suspect]
     Active Substance: BOTULINUM TOXIN TYPE A
     Indication: Product used for unknown indication
     Dosage: UNK UNK, SINGLE
     Dates: start: 20210908, end: 20210908

REACTIONS (3)
  - Cerebrovascular accident [Unknown]
  - COVID-19 [Unknown]
  - Incontinence [Unknown]
